FAERS Safety Report 6118290-6 (Version None)
Quarter: 2009Q1

REPORT INFORMATION
  Report Type: 
  Country: None (occurrence: None)
  Receive Date: 20090314
  Receipt Date: 20090212
  Transmission Date: 20090719
  Serious: No
  Sender: FDA-Public Use
  Company Number: US-ABBOTT-09P-163-0557405-00

PATIENT
  Sex: Female
  Weight: 65.376 kg

DRUGS (2)
  1. HUMIRA [Suspect]
     Indication: CROHN'S DISEASE
     Route: 058
     Dates: start: 20060101, end: 20090204
  2. IBUPROFEN [Concomitant]
     Indication: ABDOMINAL PAIN
     Route: 048

REACTIONS (3)
  - CROHN'S DISEASE [None]
  - DIARRHOEA [None]
  - INFLAMMATION [None]
